FAERS Safety Report 6160646-X (Version None)
Quarter: 2009Q2

REPORT INFORMATION
  Report Type: 
  Country: None (occurrence: None)
  Receive Date: 20090420
  Receipt Date: 20090407
  Transmission Date: 20091009
  Serious: Yes (Other)
  Sender: FDA-Public Use
  Company Number: FR-PFIZER INC-2007065587

PATIENT

DRUGS (2)
  1. CHAMPIX [Suspect]
     Indication: EX-TOBACCO USER
     Dosage: 1 MG, 2X/DAY
     Route: 048
     Dates: start: 20070724
  2. CHAMPIX [Suspect]
     Indication: NICOTINE DEPENDENCE

REACTIONS (3)
  - COUGH [None]
  - EPISTAXIS [None]
  - HAEMOPTYSIS [None]
